FAERS Safety Report 21111379 (Version 1)
Quarter: 2022Q3

REPORT INFORMATION
  Report Type: Report from Study
  Country: ES (occurrence: ES)
  Receive Date: 20220721
  Receipt Date: 20220721
  Transmission Date: 20221027
  Serious: Yes (Hospitalization)
  Sender: FDA-Public Use
  Company Number: None

PATIENT
  Age: 45 Year
  Sex: Female

DRUGS (1)
  1. SIMPONI [Suspect]
     Active Substance: GOLIMUMAB
     Indication: Spondylitis
     Dosage: 100 MG / 4 WEEKS
     Route: 058
     Dates: start: 20191216, end: 20200423

REACTIONS (1)
  - Secondary hyperthyroidism [Recovering/Resolving]

NARRATIVE: CASE EVENT DATE: 20200916
